FAERS Safety Report 9686817 (Version 2)
Quarter: 2013Q4

REPORT INFORMATION
  Report Type: Not Available
  Country: FR (occurrence: FR)
  Receive Date: 20131113
  Receipt Date: 20131127
  Transmission Date: 20140711
  Serious: Yes (Hospitalization)
  Sender: FDA-Public Use
  Company Number: FR-NAPPMUNDI-GBR-2013-0016245

PATIENT
  Age: 70 Year
  Sex: Female

DRUGS (15)
  1. OXYNORM 20 MG, GELULE [Suspect]
     Indication: PAIN
     Dosage: 20 MG, UNK
     Route: 048
     Dates: start: 201208, end: 20121018
  2. ZOLOFT [Concomitant]
     Dosage: 50 MG, AM
  3. XANAX [Concomitant]
     Dosage: 0.25 MG, AM
  4. IMOVANE [Concomitant]
     Dosage: Q1 DF, AM
  5. LEVOTHYROX [Concomitant]
     Dosage: 50 MCG, UNK
  6. ZANIDIP [Concomitant]
     Dosage: 10 MG, NOCTE
  7. CRESTOR [Concomitant]
     Dosage: 5 MG, UNK
  8. COTAREG [Concomitant]
     Dosage: 1 DF, AM
  9. INEXIUM                            /01479302/ [Concomitant]
     Dosage: 20 MG, NOCTE
  10. FUMAFER [Concomitant]
     Dosage: 66 MG, BID
  11. FOLIC ACID [Concomitant]
     Dosage: 5 MG, TID
  12. PARACETAMOL [Concomitant]
  13. IBUPROFEN [Concomitant]
  14. PROTON PUMP INHIBITORS [Concomitant]
  15. LEXOMIL [Concomitant]

REACTIONS (8)
  - Overdose [Recovered/Resolved]
  - Altered state of consciousness [Recovered/Resolved]
  - Hypokinesia [Recovered/Resolved]
  - Renal failure acute [Unknown]
  - Disorientation [Recovered/Resolved]
  - Hypotension [Unknown]
  - Diarrhoea [Unknown]
  - Somnolence [Unknown]
